FAERS Safety Report 25897389 (Version 2)
Quarter: 2025Q4

REPORT INFORMATION
  Report Type: Spontaneous
  Country: US (occurrence: US)
  Receive Date: 20251008
  Receipt Date: 20251124
  Transmission Date: 20260118
  Serious: No
  Sender: PFIZER
  Company Number: US-PFIZER INC-PV202500116537

PATIENT

DRUGS (2)
  1. GENOTROPIN [Suspect]
     Active Substance: SOMATROPIN
     Dosage: 0.8 MG INTO THE SKIN EVERY MONDAY, WEDNESDAY, FRIDAY
     Route: 058
  2. GENOTROPIN [Suspect]
     Active Substance: SOMATROPIN
     Dosage: 1 MG EVERY TUESDAY, THURSDAY, SATURDAY, SUNDAY
     Route: 058

REACTIONS (2)
  - Device leakage [Unknown]
  - Device physical property issue [Unknown]

NARRATIVE: CASE EVENT DATE: 20250516
